FAERS Safety Report 8467801-4 (Version None)
Quarter: 2012Q2

REPORT INFORMATION
  Report Type: 
  Country: None (occurrence: None)
  Receive Date: 20120626
  Receipt Date: 20120621
  Transmission Date: 20120825
  Serious: Yes (Hospitalization, Other)
  Sender: FDA-Public Use
  Company Number: CH-ROCHE-1010744

PATIENT
  Sex: Female
  Weight: 77 kg

DRUGS (10)
  1. EXCIPIAL U LIPOLOTION [Concomitant]
     Indication: DRY SKIN
     Dates: start: 20110803, end: 20111011
  2. COPEGUS [Suspect]
     Indication: HEPATITIS C
     Route: 048
     Dates: start: 20110720, end: 20111011
  3. DEPAKENE [Concomitant]
     Indication: EPILEPSY
     Route: 048
  4. AVENE TRIACNEAL [Concomitant]
     Indication: PHOTOSENSITIVITY REACTION
  5. BLINDED BI 201335 (HCV PROTEASE INHIBITOR) [Suspect]
     Indication: HEPATITIS C
     Route: 048
     Dates: start: 20110720, end: 20111011
  6. LOSARTAN POTASSIUM [Concomitant]
     Indication: HYPERTENSION
     Dosage: STRENGTH: 10 MG/25 MG
     Dates: end: 20111011
  7. LERCANIDIPINE [Concomitant]
     Indication: HYPERTENSION
     Route: 048
     Dates: end: 20111011
  8. AVENE TRIACNEAL [Concomitant]
     Indication: RASH
     Dosage: DRUG NAME REPORTED AS: AVENE SOLAR CREAM
     Dates: start: 20110720
  9. PEGASYS [Suspect]
     Indication: HEPATITIS C
     Dates: start: 20110720, end: 20111005
  10. NEBIVOLOL HCL [Concomitant]
     Indication: HYPERTENSION
     Route: 048
     Dates: end: 20111011

REACTIONS (5)
  - ANAEMIA [None]
  - THROMBOCYTOPENIA [None]
  - ASTHENIA [None]
  - HYPOTENSION [None]
  - LEUKOPENIA [None]
